FAERS Safety Report 7112882-3 (Version None)
Quarter: 2010Q4

REPORT INFORMATION
  Report Type: 
  Country: None (occurrence: None)
  Receive Date: 20101119
  Receipt Date: 20100312
  Transmission Date: 20110411
  Serious: No
  Sender: FDA-Public Use
  Company Number: US-BRISTOL-MYERS SQUIBB COMPANY-15026180

PATIENT
  Age: 59 Year
  Sex: Male

DRUGS (1)
  1. AVALIDE [Suspect]
     Dosage: 1 DOSAGE FORM = 150/12.5 MG

REACTIONS (1)
  - BLOOD PRESSURE INCREASED [None]
